FAERS Safety Report 24227983 (Version 1)
Quarter: 2024Q3

REPORT INFORMATION
  Report Type: Spontaneous
  Country: FR (occurrence: FR)
  Receive Date: 20240820
  Receipt Date: 20240820
  Transmission Date: 20241016
  Serious: Yes (Other)
  Sender: FRESENIUS KABI
  Company Number: FR-FreseniusKabi-FK202412038

PATIENT
  Age: 78 Year

DRUGS (1)
  1. SODIUM CHLORIDE [Suspect]
     Active Substance: SODIUM CHLORIDE
     Indication: Product used for unknown indication
     Dosage: FORM OF ADMINISTRATION-SOLUTION
     Route: 042

REACTIONS (2)
  - Jugular vein embolism [Unknown]
  - Vena cava embolism [Unknown]

NARRATIVE: CASE EVENT DATE: 20240510
